FAERS Safety Report 7954001-7 (Version None)
Quarter: 2011Q4

REPORT INFORMATION
  Report Type: 
  Country: None (occurrence: None)
  Receive Date: 20111202
  Receipt Date: 20111202
  Transmission Date: 20120403
  Serious: Yes (Hospitalization)
  Sender: FDA-Public Use
  Company Number: None

PATIENT
  Sex: Female
  Weight: 66.36 kg

DRUGS (1)
  1. SPRINTEC [Suspect]
     Route: 048

REACTIONS (5)
  - MUSCLE STRAIN [None]
  - SKIN DISCOLOURATION [None]
  - OEDEMA PERIPHERAL [None]
  - GROIN PAIN [None]
  - MOVEMENT DISORDER [None]
